FAERS Safety Report 15332982 (Version 1)
Quarter: 2018Q3

REPORT INFORMATION
  Report Type: Spontaneous
  Country: AR (occurrence: AR)
  Receive Date: 20180830
  Receipt Date: 20180830
  Transmission Date: 20181010
  Serious: Yes (Other)
  Sender: FDA-Public Use
  Company Number: AR-AMGEN-ARGSP2018119032

PATIENT
  Age: 67 Year
  Sex: Female

DRUGS (1)
  1. ENBREL [Suspect]
     Active Substance: ETANERCEPT
     Indication: PSORIATIC ARTHROPATHY
     Dosage: 50 MG, WEEKLY
     Route: 065
     Dates: start: 20180807

REACTIONS (6)
  - Cardiomegaly [Unknown]
  - Breast cancer [Unknown]
  - Oedema peripheral [Unknown]
  - Bronchitis [Unknown]
  - Condition aggravated [Unknown]
  - Gait disturbance [Unknown]
